FAERS Safety Report 8829827 (Version 1)
Quarter: 2012Q4

REPORT INFORMATION
  Report Type: Spontaneous
  Country: US (occurrence: None)
  Receive Date: 20121005
  Receipt Date: 20121005
  Transmission Date: 20130627
  Serious: Yes (Disabling)
  Sender: FDA-Public Use
  Company Number: None

PATIENT
  Age: 28 Year
  Sex: Female
  Weight: 61.24 kg

DRUGS (1)
  1. TYLENOL EXTRA STRENGTH [Suspect]
     Indication: FEVER
     Dosage: two pills every 6 hours po
     Route: 048
     Dates: start: 20120525, end: 20120527

REACTIONS (9)
  - Dyspnoea [None]
  - Rash [None]
  - Rash [None]
  - Rash [None]
  - Rash [None]
  - Rash [None]
  - Drug intolerance [None]
  - Eye irritation [None]
  - Accidental overdose [None]
